FAERS Safety Report 10871119 (Version 1)
Quarter: 2015Q1

REPORT INFORMATION
  Report Type: Spontaneous
  Country: US (occurrence: US)
  Receive Date: 20150226
  Receipt Date: 20150226
  Transmission Date: 20150721
  Serious: Yes (Death)
  Sender: FDA-Public Use
  Company Number: US-BANPHARM-20153488

PATIENT
  Age: 58 Year
  Sex: Female

DRUGS (3)
  1. DIPHENHYDRAMINE UNKNOWN PRODUCT [Suspect]
     Active Substance: DIPHENHYDRAMINE
     Route: 048
  2. ACETAMINOPHEN. [Suspect]
     Active Substance: ACETAMINOPHEN
  3. ETHANOL [Suspect]
     Active Substance: ALCOHOL

REACTIONS (2)
  - Drug abuse [Fatal]
  - Exposure via ingestion [None]
